FAERS Safety Report 7546241-6 (Version None)
Quarter: 2011Q2

REPORT INFORMATION
  Report Type: 
  Country: None (occurrence: None)
  Receive Date: 20110614
  Receipt Date: 20040210
  Transmission Date: 20111010
  Serious: Yes (Hospitalization)
  Sender: FDA-Public Use
  Company Number: PHFR2003GB04662

PATIENT
  Sex: Male

DRUGS (2)
  1. AMISULPRIDE [Concomitant]
     Dosage: UNKNOWN
  2. CLOZAPINE [Suspect]
     Indication: SCHIZOPHRENIA
     Dosage: UNKNOWN
     Route: 048
     Dates: start: 20031003

REACTIONS (7)
  - EMPYEMA [None]
  - PLATELET COUNT INCREASED [None]
  - MALAISE [None]
  - VOMITING [None]
  - NEUTROPHIL COUNT INCREASED [None]
  - WHITE BLOOD CELL COUNT INCREASED [None]
  - HAEMOGLOBIN DECREASED [None]
